FAERS Safety Report 18782680 (Version 2)
Quarter: 2021Q1

REPORT INFORMATION
  Report Type: Spontaneous
  Country: TR (occurrence: TR)
  Receive Date: 20210125
  Receipt Date: 20210225
  Transmission Date: 20210419
  Serious: Yes (Life-Threatening, Hospitalization)
  Sender: FDA-Public Use
  Company Number: TR-TEVA-2021-TR-1871988

PATIENT
  Age: 33 Year
  Sex: Female

DRUGS (13)
  1. POTASSIUM CHLORIDE. [Suspect]
     Active Substance: POTASSIUM CHLORIDE
     Dosage: IN THE FIRST 5 MINUTES
     Route: 065
  2. MYCOPHENOLATE MOFETIL. [Suspect]
     Active Substance: MYCOPHENOLATE MOFETIL
     Indication: ACUTE MYELOID LEUKAEMIA RECURRENT
     Dosage: MYCOPHENOLATE MOFETIL 1G 2 X 1
     Route: 065
  3. AMIODARONE [Suspect]
     Active Substance: AMIODARONE
     Indication: VENTRICULAR FIBRILLATION
     Dosage: AMIODARON 200MG TABLETS 3 X 1
     Route: 065
  4. CYCLOSPORINE?A [Suspect]
     Active Substance: CYCLOSPORINE
     Indication: ACUTE MYELOID LEUKAEMIA RECURRENT
     Route: 065
  5. PREDNISOLONE. [Suspect]
     Active Substance: PREDNISOLONE
     Indication: ACUTE MYELOID LEUKAEMIA RECURRENT
     Dosage: 1 MG/KG DAILY;
     Route: 065
  6. ACYCLOVIR. [Suspect]
     Active Substance: ACYCLOVIR
     Indication: ACUTE MYELOID LEUKAEMIA RECURRENT
     Dosage: 800MG 2 X 1
     Route: 065
  7. ATORVASTATIN [Concomitant]
     Active Substance: ATORVASTATIN
     Indication: VENTRICULAR FIBRILLATION
     Route: 065
  8. POTASSIUM CHLORIDE. [Suspect]
     Active Substance: POTASSIUM CHLORIDE
     Indication: HYPOKALAEMIA
     Dosage: 8 AMPOULES OF 10% POTASSIUM CHLORIDE INFUSION FOR 10 HOURS
     Route: 065
  9. POTASSIUM CHLORIDE. [Suspect]
     Active Substance: POTASSIUM CHLORIDE
     Dosage: 20?40 MEQ/H
     Route: 065
  10. POTASSIUM CHLORIDE. [Suspect]
     Active Substance: POTASSIUM CHLORIDE
     Dosage: 40 MEQ/H INFUSION
     Route: 065
  11. CLOPIDOGREL [Concomitant]
     Active Substance: CLOPIDOGREL BISULFATE
     Indication: VENTRICULAR FIBRILLATION
     Route: 065
  12. TARAXACUM?OFFICINALIS [Suspect]
     Active Substance: HERBALS\TARAXACUM OFFICINALE
     Indication: PHYTOTHERAPY
     Route: 065
  13. MAGNESIUM SULPHATE [Concomitant]
     Active Substance: MAGNESIUM SULFATE
     Indication: VENTRICULAR FIBRILLATION
     Route: 065

REACTIONS (9)
  - Polyuria [Recovering/Resolving]
  - Ventricular fibrillation [Recovering/Resolving]
  - Vomiting [Unknown]
  - Drug ineffective [Unknown]
  - Diarrhoea [Unknown]
  - Intentional product misuse [Unknown]
  - Hypokalaemia [Recovering/Resolving]
  - Nausea [Unknown]
  - Cardiac arrest [Recovering/Resolving]
